FAERS Safety Report 6576903-9 (Version None)
Quarter: 2010Q1

REPORT INFORMATION
  Report Type: 
  Country: None (occurrence: None)
  Receive Date: 20100210
  Receipt Date: 20100204
  Transmission Date: 20100710
  Serious: Yes (Hospitalization)
  Sender: FDA-Public Use
  Company Number: B0628408A

PATIENT
  Sex: Male
  Weight: 62 kg

DRUGS (10)
  1. AVOLVE [Suspect]
     Indication: DYSURIA
     Dosage: .5MG PER DAY
     Route: 048
     Dates: start: 20091112
  2. SILODOSIN [Concomitant]
     Route: 048
  3. MICARDIS [Concomitant]
     Indication: HYPERTENSION
     Dosage: 80MG PER DAY
     Route: 048
  4. AMIODARONE HCL [Concomitant]
     Indication: ATRIAL FIBRILLATION
     Dosage: 200MG PER DAY
     Route: 048
  5. ADALAT CC [Concomitant]
     Indication: CARDIAC FAILURE
     Dosage: 40MG PER DAY
     Route: 048
  6. ITOROL [Concomitant]
     Indication: CARDIAC FAILURE
     Dosage: 40MG PER DAY
     Route: 048
  7. OMEPRAL [Concomitant]
     Indication: GASTRIC ULCER
     Dosage: 20MG PER DAY
     Route: 048
  8. ALOSITOL [Concomitant]
     Dosage: 100MG PER DAY
     Route: 048
  9. FRUSEMIDE [Concomitant]
     Indication: CARDIAC FAILURE
     Dosage: 60MG PER DAY
     Route: 048
  10. WARFARIN SODIUM [Concomitant]
     Indication: CARDIAC FAILURE
     Dosage: 1.25MG PER DAY
     Route: 048

REACTIONS (5)
  - CARDIAC FAILURE [None]
  - CARDIOMEGALY [None]
  - PAIN IN EXTREMITY [None]
  - PLEURAL EFFUSION [None]
  - URINE OUTPUT DECREASED [None]
